FAERS Safety Report 4674235-7 (Version None)
Quarter: 2005Q2

REPORT INFORMATION
  Report Type: 
  Country: None (occurrence: None)
  Receive Date: 20050524
  Receipt Date: 20050513
  Transmission Date: 20051028
  Serious: Yes (Other)
  Sender: FDA-Public Use
  Company Number: 2005075162

PATIENT
  Age: 71 Year
  Sex: Female
  Weight: 58.9676 kg

DRUGS (6)
  1. LIPITOR [Suspect]
     Indication: BLOOD CHOLESTEROL INCREASED
     Dosage: 10 MG (10 MG, 1 IN 1 D), ORAL
     Route: 048
  2. TOPAMAX [Suspect]
     Indication: MIGRAINE
     Dosage: (DAILY), ORAL
     Route: 048
     Dates: start: 20050412
  3. PROTONIX [Concomitant]
  4. PAXIL [Concomitant]
  5. MULTIVITAMIN [Concomitant]
  6. AMBIEN [Concomitant]

REACTIONS (6)
  - ASTHENIA [None]
  - CAROTID ARTERY ANEURYSM [None]
  - ECZEMA [None]
  - FATIGUE [None]
  - SENSATION OF BLOOD FLOW [None]
  - URTICARIA [None]
